FAERS Safety Report 16595557 (Version 1)
Quarter: 2019Q3

REPORT INFORMATION
  Report Type: Spontaneous
  Country: CA (occurrence: CA)
  Receive Date: 20190719
  Receipt Date: 20190719
  Transmission Date: 20191004
  Serious: Yes (Hospitalization, Other)
  Sender: FDA-Public Use
  Company Number: CA-AUROBINDO-AUR-APL-2019-040277

PATIENT

DRUGS (4)
  1. FOSAMAX [Suspect]
     Active Substance: ALENDRONATE SODIUM
     Indication: OSTEOPOROSIS POSTMENOPAUSAL
     Dosage: UNK
     Route: 048
  2. ALENDRONIC ACID TABLETS [Suspect]
     Active Substance: ALENDRONIC ACID
     Dosage: UNK
     Route: 048
  3. ALENDRONIC ACID TABLETS [Suspect]
     Active Substance: ALENDRONIC ACID
     Indication: OSTEOPOROSIS POSTMENOPAUSAL
     Dosage: UNK
     Route: 048
  4. ALENDRONIC ACID [Suspect]
     Active Substance: ALENDRONIC ACID
     Indication: OSTEOPOROSIS POSTMENOPAUSAL
     Dosage: UNK
     Route: 048

REACTIONS (13)
  - Hypertension [Not Recovered/Not Resolved]
  - Femur fracture [Not Recovered/Not Resolved]
  - Joint stiffness [Not Recovered/Not Resolved]
  - Gastrooesophageal reflux disease [Not Recovered/Not Resolved]
  - Cardiac murmur [Not Recovered/Not Resolved]
  - Tachycardia [Not Recovered/Not Resolved]
  - Anaemia postoperative [Not Recovered/Not Resolved]
  - Cellulitis [Not Recovered/Not Resolved]
  - Dermatitis contact [Not Recovered/Not Resolved]
  - Haematoma [Not Recovered/Not Resolved]
  - Neck pain [Not Recovered/Not Resolved]
  - Bursitis [Not Recovered/Not Resolved]
  - Fracture delayed union [Not Recovered/Not Resolved]
